FAERS Safety Report 7502071-2 (Version None)
Quarter: 2011Q2

REPORT INFORMATION
  Report Type: 
  Country: None (occurrence: None)
  Receive Date: 20110525
  Receipt Date: 20100913
  Transmission Date: 20111010
  Serious: No
  Sender: FDA-Public Use
  Company Number: A0880859A

PATIENT
  Age: 30 Year
  Sex: Male

DRUGS (2)
  1. VENTOLIN [Suspect]
     Indication: ASTHMA
     Dosage: 2SPR SIX TIMES PER DAY
     Route: 055
     Dates: start: 20070101
  2. ADVAIR DISKUS 100/50 [Concomitant]

REACTIONS (3)
  - TREMOR [None]
  - PRODUCT QUALITY ISSUE [None]
  - DYSGEUSIA [None]
